FAERS Safety Report 8398421-8 (Version None)
Quarter: 2012Q2

REPORT INFORMATION
  Report Type: 
  Country: None (occurrence: None)
  Receive Date: 20120323
  Receipt Date: 20110117
  Transmission Date: 20120825
  Serious: Yes (Hospitalization)
  Sender: FDA-Public Use
  Company Number: 163-21880-10102978

PATIENT
  Age: 82 Year
  Sex: Male

DRUGS (13)
  1. PROSCAR [Concomitant]
  2. VITAMIN B12 [Concomitant]
  3. SENNA S (COLOXYL WITH SENNA) [Concomitant]
  4. COUMADIN [Concomitant]
  5. REVLIMID [Suspect]
     Indication: POLYCYTHAEMIA VERA
     Dosage: 5 MG, 1 IN 1 D, PO
     Route: 048
     Dates: start: 20100901, end: 20101004
  6. METOPROLOL TARTRATE [Concomitant]
  7. FOLIC ACID [Concomitant]
  8. CIPROFLOXACIN [Concomitant]
  9. SOLIRIS [Suspect]
     Indication: PAROXYSMAL NOCTURNAL HAEMOGLOBINURIA
     Dosage: 600 MG, QW, IV
     Route: 042
     Dates: start: 20101104
  10. NEXIUM [Concomitant]
  11. SYNTHROID [Concomitant]
  12. PREDNISONE TAB [Concomitant]
  13. MULTI-VITAMINS [Concomitant]

REACTIONS (6)
  - FALL [None]
  - DEVICE OCCLUSION [None]
  - WHITE BLOOD CELL COUNT DECREASED [None]
  - EXCORIATION [None]
  - CELLULITIS [None]
  - PLATELET COUNT DECREASED [None]
